FAERS Safety Report 23636978 (Version 1)
Quarter: 2024Q1

REPORT INFORMATION
  Report Type: Report from Study
  Country: US (occurrence: US)
  Receive Date: 20240315
  Receipt Date: 20240315
  Transmission Date: 20240409
  Serious: Yes (Hospitalization, Other)
  Sender: FDA-Public Use
  Company Number: US-GILEAD-2024-0663945

PATIENT
  Age: 40 Year
  Sex: Male

DRUGS (1)
  1. AZTREONAM LYSINE [Suspect]
     Active Substance: AZTREONAM LYSINE
     Indication: Chronic respiratory failure
     Dosage: 75MG INHALED THREE TIMES DAILY 28 DAYS ON THEN 28 DAYS OFF
     Route: 055
     Dates: start: 202306

REACTIONS (4)
  - Pneumonia [Unknown]
  - Viral infection [Unknown]
  - Intentional dose omission [Unknown]
  - Off label use [Not Recovered/Not Resolved]
